FAERS Safety Report 15226235 (Version 1)
Quarter: 2018Q3

REPORT INFORMATION
  Report Type: Spontaneous
  Country: AT (occurrence: AT)
  Receive Date: 20180801
  Receipt Date: 20180801
  Transmission Date: 20181010
  Serious: Yes (Other)
  Sender: FDA-Public Use
  Company Number: AT-009507513-1803AUT008628

PATIENT
  Age: 57 Year
  Sex: Male
  Weight: 97 kg

DRUGS (10)
  1. METFORMIN [Concomitant]
     Active Substance: METFORMIN HYDROCHLORIDE
     Dosage: 1 G, 1?0?1
  2. PIOGLITAZONE. [Concomitant]
     Active Substance: PIOGLITAZONE
     Dosage: 1 DF, QD 1?0?0
  3. EZETROL [Concomitant]
     Active Substance: EZETIMIBE
     Dosage: 1 DF, QD 0?0?1
  4. FOSTER [Concomitant]
     Active Substance: BECLOMETHASONE\FORMOTEROL
     Dosage: 1 DF, BID 1?0?1
  5. METFORMIN [Concomitant]
     Active Substance: METFORMIN HYDROCHLORIDE
     Dosage: 500 MG/DAY
  6. SIMVASTATIN. [Suspect]
     Active Substance: SIMVASTATIN
     Dosage: 40 MG, UNK
     Route: 048
  7. JENTADUETO [Concomitant]
     Active Substance: LINAGLIPTIN\METFORMIN HYDROCHLORIDE
     Dosage: 1 DF, BID 1?0?1
  8. CRESTOR [Concomitant]
     Active Substance: ROSUVASTATIN CALCIUM
     Dosage: 1 DF, QD 0?0?1
  9. TELMISARTAN. [Concomitant]
     Active Substance: TELMISARTAN
     Dosage: 1 DF, UNK 1?0?0
  10. THROMBO ASS [Concomitant]
     Active Substance: ASPIRIN
     Dosage: 1 DF, QD 0?1?0

REACTIONS (3)
  - Cardiac failure [Unknown]
  - Drug ineffective [Unknown]
  - Coronary artery disease [Unknown]
